FAERS Safety Report 12082686 (Version 1)
Quarter: 2016Q1

REPORT INFORMATION
  Report Type: Spontaneous
  Country: US (occurrence: None)
  Receive Date: 20160212
  Receipt Date: 20160212
  Transmission Date: 20160526
  Serious: No
  Sender: FDA-Public Use
  Company Number: None

PATIENT
  Age: 67 Year
  Sex: Female
  Weight: 53.52 kg

DRUGS (10)
  1. RALOXIFENE HYDROCHLORI [Concomitant]
  2. HYALURONIC ACID [Concomitant]
     Active Substance: HYALURONIC ACID
  3. ATELVIA [Suspect]
     Active Substance: RISEDRONATE SODIUM
     Indication: OSTEOGENESIS IMPERFECTA
     Dosage: 1PILL ONCE A WEEK TAKEN BY MOUTH
     Route: 048
     Dates: start: 20160201
  4. LOVASTATIN. [Concomitant]
     Active Substance: LOVASTATIN
  5. LOSARTAN POTASSIUM. [Concomitant]
     Active Substance: LOSARTAN POTASSIUM
  6. MULTI VITAMIN [Concomitant]
     Active Substance: VITAMINS
  7. CALCIUM [Concomitant]
     Active Substance: CALCIUM
  8. SUPER B COMPLEX [Concomitant]
     Active Substance: CYANOCOBALAMIN\DEXPANTHENOL\NIACINAMIDE\PYRIDOXINE HYDROCHLORIDE\RIBOFLAVIN 5^-PHOSPHATE SODIUM\THIAMINE HYDROCHLORIDE\VITAMIN B COMPLEX
  9. VITAMIN D [Concomitant]
     Active Substance: CHOLECALCIFEROL
  10. FISH OIL [Concomitant]
     Active Substance: FISH OIL

REACTIONS (11)
  - Vomiting [None]
  - Asthenia [None]
  - Fatigue [None]
  - Arthralgia [None]
  - Headache [None]
  - Joint swelling [None]
  - Abdominal discomfort [None]
  - Myalgia [None]
  - Abdominal pain upper [None]
  - Diarrhoea [None]
  - Nausea [None]

NARRATIVE: CASE EVENT DATE: 20160202
